FAERS Safety Report 10147477 (Version 1)
Quarter: 2014Q2

REPORT INFORMATION
  Report Type: Spontaneous
  Country: US (occurrence: US)
  Receive Date: 20140501
  Receipt Date: 20140501
  Transmission Date: 20141212
  Serious: No
  Sender: FDA-Public Use
  Company Number: US-009507513-1404USA011666

PATIENT
  Sex: Female

DRUGS (2)
  1. CLARITIN [Suspect]
     Indication: COUGH
     Dosage: UNK UNK, UNKNOWN
     Route: 048
     Dates: start: 201404
  2. CLARITIN [Suspect]
     Indication: UPPER-AIRWAY COUGH SYNDROME

REACTIONS (4)
  - Drug ineffective [Unknown]
  - Sneezing [Not Recovered/Not Resolved]
  - Drug prescribing error [Unknown]
  - Off label use [Unknown]
